FAERS Safety Report 9318378 (Version 3)
Quarter: 2013Q3

REPORT INFORMATION
  Report Type: Spontaneous
  Country: CA (occurrence: None)
  Receive Date: 20130524
  Receipt Date: 20130826
  Transmission Date: 20140515
  Serious: Yes (Hospitalization, Other)
  Sender: FDA-Public Use
  Company Number: 2013AP005212

PATIENT
  Age: 46 Year
  Sex: Female
  Weight: 47.1 kg

DRUGS (3)
  1. FERRIPROX [Suspect]
     Indication: IRON OVERLOAD
     Route: 048
     Dates: start: 201208, end: 20130503
  2. CALCIUM [Concomitant]
  3. VITAMIN D [Concomitant]

REACTIONS (3)
  - Agranulocytosis [None]
  - Upper respiratory tract infection [None]
  - Neutropenia [None]
